FAERS Safety Report 25009345 (Version 5)
Quarter: 2025Q2

REPORT INFORMATION
  Report Type: Spontaneous
  Country: US (occurrence: US)
  Receive Date: 20250225
  Receipt Date: 20250605
  Transmission Date: 20250716
  Serious: No
  Sender: PFIZER
  Company Number: US-PFIZER INC-202400274674

PATIENT
  Age: 38 Year
  Sex: Male

DRUGS (2)
  1. VELSIPITY [Suspect]
     Active Substance: ETRASIMOD ARGININE
     Indication: Colitis ulcerative
     Dosage: 2 MG, 1X/DAY, WITH OR WITHOUT FOOD, SWALLOW TABLET WHOLE
     Route: 048
     Dates: start: 20241102
  2. ZYRTEC [Concomitant]
     Active Substance: CETIRIZINE HYDROCHLORIDE
     Indication: Hypersensitivity

REACTIONS (4)
  - Change of bowel habit [Unknown]
  - Snoring [Unknown]
  - Arthralgia [Unknown]
  - Frequent bowel movements [Unknown]
